FAERS Safety Report 7804294-1 (Version None)
Quarter: 2011Q4

REPORT INFORMATION
  Report Type: 
  Country: None (occurrence: None)
  Receive Date: 20111010
  Receipt Date: 20110707
  Transmission Date: 20120403
  Serious: Yes (Hospitalization, Other)
  Sender: FDA-Public Use
  Company Number: US-BAYER-2010-002148

PATIENT
  Age: 25 Year
  Sex: Female
  Weight: 68.027 kg

DRUGS (3)
  1. YAZ [Suspect]
     Indication: PRODUCT USED FOR UNKNOWN INDICATION
     Dosage: UNK
     Dates: start: 19990101, end: 20000101
  2. YASMIN [Suspect]
     Indication: PRODUCT USED FOR UNKNOWN INDICATION
     Dosage: UNK
     Dates: start: 19990101, end: 20000101
  3. PRILOSEC [Concomitant]

REACTIONS (2)
  - GALLBLADDER INJURY [None]
  - CHOLELITHIASIS [None]
